FAERS Safety Report 14896400 (Version 1)
Quarter: 2018Q2

REPORT INFORMATION
  Report Type: Spontaneous
  Country: FR (occurrence: FR)
  Receive Date: 20180515
  Receipt Date: 20180515
  Transmission Date: 20180711
  Serious: Yes (Other)
  Sender: FDA-Public Use
  Company Number: FR-MERCK KGAA-2047773

PATIENT
  Age: 39 Year
  Sex: Female
  Weight: 59 kg

DRUGS (1)
  1. NOVOTHYROX [Suspect]
     Active Substance: LEVOTHYROXINE SODIUM
     Indication: PRODUCT USED FOR UNKNOWN INDICATION

REACTIONS (23)
  - Dizziness [None]
  - Depression [None]
  - Anger [None]
  - Weight increased [None]
  - Personal relationship issue [None]
  - Headache [None]
  - Angina pectoris [None]
  - Alopecia [None]
  - Fatigue [None]
  - Irritability [None]
  - Discomfort [None]
  - Asthenia [None]
  - Feeling guilty [None]
  - Impatience [None]
  - Insomnia [None]
  - Apathy [None]
  - Anti-thyroid antibody [None]
  - Social avoidant behaviour [None]
  - Psychiatric symptom [None]
  - Hyperhidrosis [None]
  - Crying [None]
  - Chest pain [None]
  - Muscular weakness [None]

NARRATIVE: CASE EVENT DATE: 20170506
